FAERS Safety Report 10496403 (Version 1)
Quarter: 2014Q4

REPORT INFORMATION
  Report Type: Spontaneous
  Country: US (occurrence: US)
  Receive Date: 20141003
  Receipt Date: 20141003
  Transmission Date: 20150528
  Serious: No
  Sender: FDA-Public Use
  Company Number: US-TARO-2014P1003276

PATIENT
  Sex: Female

DRUGS (2)
  1. AQUAPHOR [Concomitant]
     Active Substance: PETROLATUM
  2. TOPICORT [Suspect]
     Active Substance: DESOXIMETASONE
     Indication: DRUG THERAPY
     Route: 061

REACTIONS (1)
  - Application site pruritus [Recovered/Resolved]
